FAERS Safety Report 19477528 (Version 1)
Quarter: 2021Q2

REPORT INFORMATION
  Report Type: Spontaneous
  Country: FR (occurrence: FR)
  Receive Date: 20210630
  Receipt Date: 20210630
  Transmission Date: 20210717
  Serious: Yes (Other)
  Sender: FDA-Public Use
  Company Number: FR-US-PROVELL PHARMACEUTICALS LLC-9247434

PATIENT
  Sex: Female

DRUGS (3)
  1. LEVOTHYROX [Suspect]
     Active Substance: LEVOTHYROXINE
     Indication: POST PROCEDURAL HYPOTHYROIDISM
     Dosage: NEW FORMULA OF LEVOTHYROX
     Dates: start: 201702, end: 201705
  2. LEVOTHYROX [Suspect]
     Active Substance: LEVOTHYROXINE
     Dosage: IRUN (SPAIN), OLD FORMULA OF LEVOTHYROX
     Dates: start: 201706
  3. FOSAMAX [Concomitant]
     Active Substance: ALENDRONATE SODIUM
     Indication: OSTEOGENESIS IMPERFECTA

REACTIONS (14)
  - Fatigue [Unknown]
  - Diarrhoea [Unknown]
  - Gastrointestinal disorder [Unknown]
  - Eye disorder [Unknown]
  - Dizziness [Recovering/Resolving]
  - Retinal detachment [Unknown]
  - Balance disorder [Recovering/Resolving]
  - Amnesia [Unknown]
  - Lacrimation increased [Unknown]
  - Cardiac disorder [Unknown]
  - Blood pressure increased [Unknown]
  - Vertigo [Recovering/Resolving]
  - Muscle spasms [Unknown]
  - Tinnitus [Recovering/Resolving]

NARRATIVE: CASE EVENT DATE: 2017
